FAERS Safety Report 5726079-2 (Version None)
Quarter: 2008Q2

REPORT INFORMATION
  Report Type: 
  Country: None (occurrence: None)
  Receive Date: 20080502
  Receipt Date: 20080422
  Transmission Date: 20081010
  Serious: Yes (Disabling)
  Sender: FDA-Public Use
  Company Number: HQWYE291707JUN04

PATIENT
  Sex: Female

DRUGS (4)
  1. PREMPRO [Suspect]
     Indication: HORMONE REPLACEMENT THERAPY
  2. PROVERA [Suspect]
  3. MEDROXYPROGESTERONE ACETATE [Suspect]
  4. PREMARIN [Suspect]

REACTIONS (3)
  - BREAST CANCER METASTATIC [None]
  - MYOCARDIAL INFARCTION [None]
  - THROMBOSIS [None]
